FAERS Safety Report 21600966 (Version 4)
Quarter: 2022Q4

REPORT INFORMATION
  Report Type: Spontaneous
  Country: BR (occurrence: BR)
  Receive Date: 20221116
  Receipt Date: 20221228
  Transmission Date: 20230112
  Serious: Yes (Other)
  Sender: FDA-Public Use
  Company Number: BR-SA-SAC20221103001091

PATIENT
  Age: 68 Year
  Sex: Male
  Weight: 62 kg

DRUGS (12)
  1. THYMOGLOBULINE [Suspect]
     Active Substance: LAPINE T-LYMPHOCYTE IMMUNE GLOBULIN
     Indication: Immunosuppression
     Dosage: 220 MG, QD
     Route: 042
     Dates: start: 20220710, end: 20220711
  2. HYDROCORTISONE [Concomitant]
     Active Substance: HYDROCORTISONE
     Dosage: 300 MG, QD
     Route: 042
     Dates: start: 20220710, end: 20220710
  3. CEFAZOLIN [Concomitant]
     Active Substance: CEFAZOLIN
     Dosage: 1 G, Q8H
     Route: 042
     Dates: start: 20220710, end: 20220711
  4. DIPYRONE [Concomitant]
     Active Substance: DIPYRONE
     Dosage: 1 G, QD
     Route: 042
     Dates: start: 20220710, end: 20220711
  5. PREDNISONE [Concomitant]
     Active Substance: PREDNISONE
     Dosage: 5 MG, QD
     Route: 048
     Dates: start: 20220710
  6. OMEPRAZOLE [Concomitant]
     Active Substance: OMEPRAZOLE
     Dosage: 20 MG, Q12H
     Route: 048
     Dates: start: 20220711
  7. AMLODIPINE [Concomitant]
     Active Substance: AMLODIPINE BESYLATE
     Dosage: 5 MG, Q12H
     Route: 048
     Dates: start: 20220715
  8. ATENOLOL [Concomitant]
     Active Substance: ATENOLOL
     Dosage: 50 MG, QD
     Route: 048
     Dates: start: 20220715
  9. MYCOPHENOLATE SODIUM [Concomitant]
     Active Substance: MYCOPHENOLATE SODIUM
     Dosage: 360 MG, Q12H
     Route: 048
     Dates: start: 20220711
  10. TACROLIMUS [Concomitant]
     Active Substance: TACROLIMUS
     Dosage: 2 MG, Q12H
     Route: 048
     Dates: start: 20220711
  11. BACTRIM [Concomitant]
     Active Substance: SULFAMETHOXAZOLE\TRIMETHOPRIM
     Dosage: 400/80MG, QD
     Route: 048
     Dates: start: 20220715
  12. ASPIRIN [Concomitant]
     Active Substance: ASPIRIN
     Dosage: 100 MG, QD
     Route: 048
     Dates: start: 20220922

REACTIONS (2)
  - Transplant rejection [Unknown]
  - Drug ineffective [Unknown]
